FAERS Safety Report 14639563 (Version 2)
Quarter: 2018Q2

REPORT INFORMATION
  Report Type: Spontaneous
  Country: IT (occurrence: IT)
  Receive Date: 20180315
  Receipt Date: 20180410
  Transmission Date: 20180711
  Serious: Yes (Other)
  Sender: FDA-Public Use
  Company Number: IT-AUROBINDO-AUR-APL-2018-013576

PATIENT
  Age: 2 Year
  Sex: Male

DRUGS (2)
  1. LORAZEPAM TABLETS [Suspect]
     Active Substance: LORAZEPAM
     Indication: ACCIDENTAL OVERDOSE
     Dosage: 5 MILLIGRAM
     Route: 065
     Dates: start: 20180219, end: 20180219
  2. COUMADINE [Suspect]
     Active Substance: WARFARIN SODIUM
     Indication: ACCIDENTAL OVERDOSE
     Dosage: 60 MILLIGRAM
     Route: 048
     Dates: start: 20180219, end: 20180219

REACTIONS (2)
  - Somnolence [Recovered/Resolved]
  - Toxicity to various agents [Recovered/Resolved]

NARRATIVE: CASE EVENT DATE: 20180219
